FAERS Safety Report 6066380-9 (Version None)
Quarter: 2009Q1

REPORT INFORMATION
  Report Type: 
  Country: None (occurrence: None)
  Receive Date: 20090205
  Receipt Date: 20090126
  Transmission Date: 20090719
  Serious: Yes (Hospitalization, Other)
  Sender: FDA-Public Use
  Company Number: US-PFIZER INC-2009161105

PATIENT
  Sex: Female

DRUGS (1)
  1. TIKOSYN [Suspect]
     Dosage: UNIT DOSE: UNKNOWN;

REACTIONS (3)
  - ANGINA PECTORIS [None]
  - SUBDURAL HAEMATOMA [None]
  - SURGERY [None]
